FAERS Safety Report 8069323-1 (Version None)
Quarter: 2012Q1

REPORT INFORMATION
  Report Type: 
  Country: None (occurrence: None)
  Receive Date: 20120125
  Receipt Date: 20120120
  Transmission Date: 20120608
  Serious: Yes (Hospitalization, Other)
  Sender: FDA-Public Use
  Company Number: US-JNJFOC-20070801858

PATIENT
  Sex: Male

DRUGS (4)
  1. ZYPREXA [Suspect]
     Indication: BIPOLAR DISORDER
     Route: 065
  2. RISPERDAL [Suspect]
     Indication: OBSESSIVE THOUGHTS
     Route: 065
  3. RISPERDAL [Suspect]
     Indication: HYPOMANIA
     Route: 065
  4. RISPERDAL [Suspect]
     Indication: BIPOLAR DISORDER
     Route: 065

REACTIONS (7)
  - HYPERTRIGLYCERIDAEMIA [None]
  - AKATHISIA [None]
  - TYPE 2 DIABETES MELLITUS [None]
  - DIABETIC KETOACIDOSIS [None]
  - RENAL FAILURE [None]
  - DIABETIC HYPEROSMOLAR COMA [None]
  - HYPERKALAEMIA [None]
